FAERS Safety Report 20095036 (Version 1)
Quarter: 2021Q4

REPORT INFORMATION
  Report Type: Spontaneous
  Country: US (occurrence: US)
  Receive Date: 20211122
  Receipt Date: 20211122
  Transmission Date: 20220303
  Serious: Yes (Other)
  Sender: FDA-Public Use
  Company Number: US-drreddys-LIT/USA/21/0143852

PATIENT
  Age: 74 Year
  Sex: Male

DRUGS (5)
  1. ABIRATERONE [Suspect]
     Active Substance: ABIRATERONE
     Indication: Prostate cancer metastatic
  2. CISPLATIN [Suspect]
     Active Substance: CISPLATIN
     Indication: Product used for unknown indication
  3. PREDNISONE [Suspect]
     Active Substance: PREDNISONE
     Indication: Product used for unknown indication
     Dosage: DECREASED FROM 5 MG TWICE DAILY AND INCREASED TO 5 MG TWICE DAILY
  4. PREDNISONE [Suspect]
     Active Substance: PREDNISONE
     Dosage: DECREASED FROM 5 MG TWICE DAILY AND INCREASED TO 5 MG TWICE DAILY
  5. SPIRONOLACTONE [Suspect]
     Active Substance: SPIRONOLACTONE
     Indication: Product used for unknown indication

REACTIONS (1)
  - Apparent mineralocorticoid excess [Unknown]
